FAERS Safety Report 15586949 (Version 1)
Quarter: 2018Q4

REPORT INFORMATION
  Report Type: Spontaneous
  Country: US (occurrence: US)
  Receive Date: 20181102
  Receipt Date: 20181102
  Transmission Date: 20190205
  Serious: No
  Sender: FDA-Public Use
  Company Number: None

PATIENT
  Age: 39 Year
  Sex: Female
  Weight: 168.75 kg

DRUGS (1)
  1. ZYVOX [Suspect]
     Active Substance: LINEZOLID
     Indication: CELLULITIS
     Dosage: ?          QUANTITY:20 TABLET(S);?
     Route: 048

REACTIONS (3)
  - Balance disorder [None]
  - Stupor [None]
  - Coordination abnormal [None]

NARRATIVE: CASE EVENT DATE: 20181102
